FAERS Safety Report 9274702 (Version 1)
Quarter: 2013Q2

REPORT INFORMATION
  Report Type: Spontaneous
  Country: US (occurrence: None)
  Receive Date: 20130430
  Receipt Date: 20130430
  Transmission Date: 20140414
  Serious: Yes (Other)
  Sender: FDA-Public Use
  Company Number: None

PATIENT
  Age: 47 Year
  Sex: Male
  Weight: 104.33 kg

DRUGS (1)
  1. SCOPOLAMINE [Suspect]
     Indication: MOTION SICKNESS
     Dosage: 1 TO 2 PATCHES  EVERYDAY FOR A YR
     Dates: start: 19860301, end: 19880301

REACTIONS (3)
  - Toxicity to various agents [None]
  - Parotidectomy [None]
  - Mastectomy [None]
